FAERS Safety Report 10157313 (Version 1)
Quarter: 2014Q2

REPORT INFORMATION
  Report Type: Spontaneous
  Country: US (occurrence: US)
  Receive Date: 20140507
  Receipt Date: 20140507
  Transmission Date: 20141212
  Serious: No
  Sender: FDA-Public Use
  Company Number: US-009507513-1405USA003665

PATIENT
  Sex: Female

DRUGS (8)
  1. REMERON [Suspect]
     Dosage: UNK
     Route: 048
  2. PROVENTIL [Concomitant]
     Dosage: NEBULIZER
     Route: 055
  3. SPIRIVA [Concomitant]
  4. WELLBUTRIN [Concomitant]
  5. PROZAC [Concomitant]
  6. CODEINE [Concomitant]
  7. CECLOR [Concomitant]
  8. SPIRONOLACTONE [Concomitant]

REACTIONS (6)
  - Weight increased [Unknown]
  - Malaise [Unknown]
  - Weight decreased [Unknown]
  - Emergency care examination [Unknown]
  - Pruritus [Unknown]
  - Skin discolouration [Unknown]
